FAERS Safety Report 20423901 (Version 1)
Quarter: 2022Q1

REPORT INFORMATION
  Report Type: Report from Study
  Country: US (occurrence: US)
  Receive Date: 20220203
  Receipt Date: 20220203
  Transmission Date: 20220423
  Serious: Yes (Other)
  Sender: FDA-Public Use
  Company Number: US-EXELIXIS-CABO-21046708

PATIENT
  Age: 69 Year
  Sex: Male
  Weight: 79.365 kg

DRUGS (1)
  1. CABOMETYX [Suspect]
     Active Substance: CABOZANTINIB S-MALATE
     Indication: Renal cancer
     Dosage: 60 MG, QD
     Route: 048
     Dates: start: 20211009

REACTIONS (6)
  - Pulmonary embolism [Unknown]
  - Adverse drug reaction [Unknown]
  - Sensitive skin [Unknown]
  - Hypophagia [Unknown]
  - Dysgeusia [Unknown]
  - Weight decreased [Unknown]

NARRATIVE: CASE EVENT DATE: 20211201
